FAERS Safety Report 9474949 (Version 3)
Quarter: 2013Q3

REPORT INFORMATION
  Report Type: Spontaneous
  Country: US (occurrence: US)
  Receive Date: 20130824
  Receipt Date: 20130904
  Transmission Date: 20140515
  Serious: Yes (Hospitalization, Other)
  Sender: FDA-Public Use
  Company Number: US-JNJFOC-20100807522

PATIENT
  Sex: Male

DRUGS (6)
  1. LEVAMISOLE [Suspect]
     Indication: ACCIDENTAL EXPOSURE TO PRODUCT
     Route: 065
  2. COCAINE [Suspect]
     Indication: DRUG ABUSE
     Route: 065
  3. OPIATES [Suspect]
     Indication: PRODUCT USED FOR UNKNOWN INDICATION
     Route: 065
  4. ALCOHOL [Suspect]
     Indication: PRODUCT USED FOR UNKNOWN INDICATION
     Route: 065
  5. PARACETAMOL [Suspect]
     Route: 065
  6. PARACETAMOL [Suspect]
     Indication: PRODUCT USED FOR UNKNOWN INDICATION
     Route: 065

REACTIONS (4)
  - Leukopenia [Recovered/Resolved]
  - Toxicity to various agents [Recovered/Resolved]
  - Agranulocytosis [Recovered/Resolved]
  - Oral infection [Unknown]
